FAERS Safety Report 12943765 (Version 1)
Quarter: 2016Q4

REPORT INFORMATION
  Report Type: Spontaneous
  Country: US (occurrence: US)
  Receive Date: 20161115
  Receipt Date: 20161115
  Transmission Date: 20170207
  Serious: No
  Sender: FDA-Public Use
  Company Number: US-ROCHE-1755882

PATIENT
  Age: 6 Year
  Sex: Male

DRUGS (3)
  1. MOTRIN [Concomitant]
     Active Substance: IBUPROFEN
     Indication: PYREXIA
     Route: 065
  2. TYLENOL [Concomitant]
     Active Substance: ACETAMINOPHEN
     Indication: PYREXIA
     Route: 065
  3. TAMIFLU [Suspect]
     Active Substance: OSELTAMIVIR PHOSPHATE
     Indication: INFLUENZA
     Dosage: 6 MG, 7.5 ML TWICE DAILY
     Route: 048
     Dates: start: 20160508

REACTIONS (1)
  - Vomiting [Unknown]

NARRATIVE: CASE EVENT DATE: 20160509
